FAERS Safety Report 4967738-9 (Version None)
Quarter: 2006Q2

REPORT INFORMATION
  Report Type: 
  Country: None (occurrence: None)
  Receive Date: 20060404
  Receipt Date: 20060327
  Transmission Date: 20061013
  Serious: Yes (Life-Threatening)
  Sender: FDA-Public Use
  Company Number: 2006-139975-NL

PATIENT
  Age: 20 Year
  Sex: Female

DRUGS (12)
  1. MIRTAZAPINE [Suspect]
     Dosage: 15 MG ONCE ORAL
     Route: 048
     Dates: start: 20060301, end: 20060301
  2. OLANZAPINE [Suspect]
     Dosage: 5 MG/10 MG ORAL
     Route: 048
     Dates: start: 20060222, end: 20060223
  3. OLANZAPINE [Suspect]
     Dosage: 5 MG/10 MG ORAL
     Route: 048
     Dates: start: 20060224, end: 20060303
  4. DOXEPIN [Suspect]
     Dosage: 50 MG/100 MG/125 MG/150 MG ORAL
     Route: 048
     Dates: start: 20060203, end: 20060209
  5. DOXEPIN [Suspect]
     Dosage: 50 MG/100 MG/125 MG/150 MG ORAL
     Route: 048
     Dates: start: 20060210, end: 20060214
  6. DOXEPIN [Suspect]
     Dosage: 50 MG/100 MG/125 MG/150 MG ORAL
     Route: 048
     Dates: start: 20060215, end: 20060226
  7. DOXEPIN [Suspect]
     Dosage: 50 MG/100 MG/125 MG/150 MG ORAL
     Route: 048
     Dates: start: 20060227, end: 20060303
  8. LORAZEPAM [Suspect]
     Dosage: 1.5 MG/1 MG ORAL
     Route: 048
     Dates: start: 20060222, end: 20060227
  9. LORAZEPAM [Suspect]
     Dosage: 1.5 MG/1 MG ORAL
     Route: 048
  10. ZOPICLONE [Concomitant]
  11. LEVOTHYROXINE SODIUM [Concomitant]
  12. POTASSIUM CHLORIDE [Concomitant]

REACTIONS (4)
  - ASCITES [None]
  - HEPATIC FAILURE [None]
  - HEPATOCELLULAR DAMAGE [None]
  - PANCREATITIS [None]
